FAERS Safety Report 10063322 (Version 2)
Quarter: 2014Q2

REPORT INFORMATION
  Report Type: Report from Study
  Country: CA (occurrence: CA)
  Receive Date: 20140407
  Receipt Date: 20140407
  Transmission Date: 20141212
  Serious: Yes (Hospitalization, Other)
  Sender: FDA-Public Use
  Company Number: CA-ABBVIE-14P-028-1195398-00

PATIENT
  Age: 48 Year
  Sex: Male

DRUGS (2)
  1. HUMIRA [Suspect]
     Indication: CROHN^S DISEASE
     Route: 058
     Dates: start: 20081216, end: 20131208
  2. HUMIRA [Suspect]
     Route: 058
     Dates: start: 20140111

REACTIONS (3)
  - Thrombosis [Unknown]
  - Hip fracture [Unknown]
  - Pulmonary embolism [Unknown]
